FAERS Safety Report 23559839 (Version 2)
Quarter: 2024Q2

REPORT INFORMATION
  Report Type: Spontaneous
  Country: US (occurrence: US)
  Receive Date: 20240223
  Receipt Date: 20240411
  Transmission Date: 20240715
  Serious: Yes (Hospitalization, Other)
  Sender: FDA-Public Use
  Company Number: US-BAYER-2024A025554

PATIENT
  Age: 74 Year
  Sex: Female

DRUGS (4)
  1. MIDOL EXTENDED RELIEF [Suspect]
     Active Substance: NAPROXEN SODIUM
     Dosage: NOT AVAILABLE
     Dates: start: 20221119
  2. AVAPRITINIB [Suspect]
     Active Substance: AVAPRITINIB
     Indication: Gastrointestinal stromal tumour
     Dosage: 300 MG
  3. AVAPRITINIB [Suspect]
     Active Substance: AVAPRITINIB
     Indication: Gastrointestinal stromal tumour
     Dosage: 100 MG, QD
     Dates: start: 20221119
  4. AVAPRITINIB [Suspect]
     Active Substance: AVAPRITINIB
     Indication: Gastrointestinal stromal tumour
     Dosage: 300 MG
     Dates: start: 202212

REACTIONS (10)
  - Cerebral haemorrhage [Unknown]
  - Dysphagia [Not Recovered/Not Resolved]
  - Salivary hypersecretion [Unknown]
  - General physical health deterioration [Unknown]
  - Weight decreased [Unknown]
  - Migraine [Unknown]
  - Pain [Unknown]
  - Insomnia [Unknown]
  - Salivary gland disorder [Unknown]
  - Cachexia [Unknown]

NARRATIVE: CASE EVENT DATE: 20230701
